FAERS Safety Report 4316726-4 (Version None)
Quarter: 2004Q1

REPORT INFORMATION
  Report Type: 
  Country: None (occurrence: None)
  Receive Date: 20040311
  Receipt Date: 20040210
  Transmission Date: 20041129
  Serious: No
  Sender: FDA-Public Use
  Company Number: 200314672BCC

PATIENT
  Age: 65 Year
  Sex: Female
  Weight: 76.2043 kg

DRUGS (8)
  1. ALEVE (CAPLET) [Suspect]
     Indication: PELVIC INFLAMMATORY DISEASE
     Dosage: 440 MG, QD, ORAL
     Route: 048
     Dates: start: 20031201, end: 20031215
  2. SYNTHROID [Concomitant]
  3. HYDROCHLOROTHIAZIDE [Concomitant]
  4. MULTI-VITAMINS [Concomitant]
  5. FISH OIL [Concomitant]
  6. CALCIUM [Concomitant]
  7. ASPIRIN [Concomitant]
  8. ACTONEL [Concomitant]

REACTIONS (1)
  - BLOOD PRESSURE INCREASED [None]
